FAERS Safety Report 11757562 (Version 1)
Quarter: 2015Q4

REPORT INFORMATION
  Report Type: Spontaneous
  Country: HR (occurrence: HR)
  Receive Date: 20151120
  Receipt Date: 20151120
  Transmission Date: 20160304
  Serious: Yes (Other)
  Sender: FDA-Public Use
  Company Number: HR-FRESENIUS KABI-FK201505974

PATIENT
  Age: 61 Year
  Sex: Female

DRUGS (6)
  1. TRETINOIN. [Suspect]
     Active Substance: TRETINOIN
     Route: 065
  2. CYCLOPHOSPHAMIDE (MANUFACTURER UNKNOWN) [Suspect]
     Active Substance: CYCLOPHOSPHAMIDE
     Indication: BREAST CANCER
     Route: 065
  3. PACLITAXEL (MANUFACTURER UNKNOWN) [Suspect]
     Active Substance: PACLITAXEL
     Indication: BREAST CANCER
     Route: 065
  4. DOXORUBICIN (MANUFACTURER UNKNOWN) [Suspect]
     Active Substance: DOXORUBICIN
     Indication: BREAST CANCER
     Route: 065
  5. METHOTREXATE (MANUFACTURER UNKNOWN) [Suspect]
     Active Substance: METHOTREXATE
     Route: 065
  6. MERCAPTOPURINE (MANUFACTURER UNKNOWN) [Suspect]
     Active Substance: MERCAPTOPURINE
     Route: 065

REACTIONS (2)
  - Acute promyelocytic leukaemia [Unknown]
  - Myelodysplastic syndrome [Unknown]
